FAERS Safety Report 8031957-8 (Version None)
Quarter: 2012Q1

REPORT INFORMATION
  Report Type: 
  Country: None (occurrence: None)
  Receive Date: 20120109
  Receipt Date: 20111027
  Transmission Date: 20120608
  Serious: No
  Sender: FDA-Public Use
  Company Number: US-ABBOTT-11P-163-0869688-00

PATIENT
  Sex: Male

DRUGS (2)
  1. OXYCONTIN [Suspect]
     Indication: PAIN
     Dates: start: 20110101, end: 20110101
  2. VICODIN [Suspect]
     Indication: PAIN
     Dates: start: 20110101, end: 20110101

REACTIONS (1)
  - DRUG INEFFECTIVE [None]
